FAERS Safety Report 9011812 (Version 1)
Quarter: 2013Q1

REPORT INFORMATION
  Report Type: Spontaneous
  Country: US (occurrence: US)
  Receive Date: 20130113
  Receipt Date: 20130113
  Transmission Date: 20140127
  Serious: Yes (Hospitalization, Other)
  Sender: FDA-Public Use
  Company Number: US-009507513-1301USA003891

PATIENT
  Age: 66 Year
  Sex: Female

DRUGS (9)
  1. SINGULAIR [Suspect]
  2. KLONOPIN [Suspect]
     Indication: ARTHRALGIA
  3. HYDROCODONE BITARTRATE [Suspect]
     Indication: GASTRIC DISORDER
  4. ALBUTEROL SULFATE\IPRATROPIUM BROMIDE [Suspect]
     Indication: NERVOUSNESS
  5. PROAIR HFA [Suspect]
     Indication: RESPIRATORY DISORDER
  6. ADVAIR [Suspect]
     Indication: SMOKING CESSATION THERAPY
  7. NEXIUM [Suspect]
     Indication: THYROIDECTOMY
  8. LEVOTHYROXINE SODIUM [Suspect]
  9. CHANTIX [Suspect]

REACTIONS (2)
  - Cerebrovascular accident [Unknown]
  - Potentiating drug interaction [Unknown]
